FAERS Safety Report 4432715-3 (Version None)
Quarter: 2004Q3

REPORT INFORMATION
  Report Type: 
  Country: None (occurrence: None)
  Receive Date: 20040820
  Receipt Date: 20040817
  Transmission Date: 20050211
  Serious: Yes (Life-Threatening)
  Sender: FDA-Public Use
  Company Number: 2004-119424-NL

PATIENT
  Age: 61 Year
  Sex: Male

DRUGS (2)
  1. VECURONIUM BROMIDE [Suspect]
     Indication: INDUCTION OF ANAESTHESIA
     Route: 042
     Dates: start: 20040702, end: 20040702
  2. PROPOFOL [Concomitant]
     Route: 039

REACTIONS (3)
  - ANAPHYLACTOID SHOCK [None]
  - ASTHMA [None]
  - RADIOALLERGOSORBENT TEST POSITIVE [None]
